FAERS Safety Report 13991812 (Version 1)
Quarter: 2017Q3

REPORT INFORMATION
  Report Type: Spontaneous
  Country: US (occurrence: US)
  Receive Date: 20170920
  Receipt Date: 20170920
  Transmission Date: 20171128
  Serious: No
  Sender: FDA-Public Use
  Company Number: US-JNJFOC-20170718815

PATIENT
  Age: 55 Year
  Sex: Male
  Weight: 81.65 kg

DRUGS (6)
  1. RISPERDAL M-TAB [Suspect]
     Active Substance: RISPERIDONE
     Indication: PRODUCT USED FOR UNKNOWN INDICATION
     Route: 065
  2. RISPERDAL CONSTA [Suspect]
     Active Substance: RISPERIDONE
     Indication: SCHIZOAFFECTIVE DISORDER
     Route: 030
  3. LAMICTAL [Concomitant]
     Active Substance: LAMOTRIGINE
     Dosage: AT NIGHT
     Route: 065
  4. LITHIUM. [Concomitant]
     Active Substance: LITHIUM
     Route: 065
  5. CLONAZEPAM. [Concomitant]
     Active Substance: CLONAZEPAM
     Dosage: 1 MG NIGHTLY, 0.5 DAILY
     Route: 065
  6. RISPERDAL CONSTA [Suspect]
     Active Substance: RISPERIDONE
     Indication: BIPOLAR DISORDER
     Route: 030

REACTIONS (4)
  - Inappropriate schedule of drug administration [Unknown]
  - Off label use [Unknown]
  - Device leakage [Unknown]
  - Drug dose omission [Unknown]

NARRATIVE: CASE EVENT DATE: 20170724
